FAERS Safety Report 25524854 (Version 1)
Quarter: 2025Q3

REPORT INFORMATION
  Report Type: Spontaneous
  Country: JP (occurrence: JP)
  Receive Date: 20250707
  Receipt Date: 20250707
  Transmission Date: 20251020
  Serious: Yes (Hospitalization, Other)
  Sender: GLAND PHARMA LTD
  Company Number: JP-GLANDPHARMA-JP-2025GLNLIT01587

PATIENT
  Age: 8 Decade
  Sex: Male

DRUGS (9)
  1. GEMCITABINE [Suspect]
     Active Substance: GEMCITABINE
     Indication: Pancreatic carcinoma
     Route: 065
  2. GEMCITABINE [Suspect]
     Active Substance: GEMCITABINE
     Indication: Metastases to liver
     Route: 065
  3. PACLITAXEL [Suspect]
     Active Substance: PACLITAXEL
     Indication: Pancreatic carcinoma
     Route: 065
  4. PACLITAXEL [Suspect]
     Active Substance: PACLITAXEL
     Indication: Metastases to liver
  5. GIMERACIL\OTERACIL\TEGAFUR [Suspect]
     Active Substance: GIMERACIL\OTERACIL POTASSIUM\TEGAFUR
     Indication: Pancreatic carcinoma
     Route: 065
  6. GIMERACIL\OTERACIL\TEGAFUR [Suspect]
     Active Substance: GIMERACIL\OTERACIL POTASSIUM\TEGAFUR
     Indication: Metastases to liver
  7. LOXOPROFEN [Concomitant]
     Active Substance: LOXOPROFEN
     Route: 065
  8. OXYCODONE [Concomitant]
     Active Substance: OXYCODONE
     Route: 065
  9. RABEPRAZOLE [Concomitant]
     Active Substance: RABEPRAZOLE
     Route: 065

REACTIONS (2)
  - Pancreatic abscess [Unknown]
  - Drug ineffective [Unknown]
